FAERS Safety Report 5510157-7 (Version None)
Quarter: 2007Q4

REPORT INFORMATION
  Report Type: 
  Country: None (occurrence: None)
  Receive Date: 20071108
  Receipt Date: 20071107
  Transmission Date: 20080405
  Serious: Yes (Death)
  Sender: FDA-Public Use
  Company Number: FR-BRISTOL-MYERS SQUIBB COMPANY-13862206

PATIENT
  Age: 70 Year
  Sex: Male

DRUGS (21)
  1. SINEMET CR [Suspect]
     Dosage: 1 DOSAGE FORM = 25/100MG
     Route: 048
  2. PERFALGAN IV [Suspect]
     Route: 042
     Dates: start: 20070718, end: 20070718
  3. FLURBIPROFEN [Suspect]
     Dates: start: 20070606, end: 20070617
  4. PAROXETINE [Suspect]
     Dates: end: 20070716
  5. COMTAN [Suspect]
  6. REQUIP [Suspect]
  7. MODOPAR [Suspect]
  8. TAMSULOSIN HCL [Suspect]
  9. IMOVANE [Suspect]
  10. MOTILIUM [Suspect]
  11. PERMIXON [Suspect]
  12. XANAX [Suspect]
     Dates: start: 20070717
  13. PANTOPRAZOLE SODIUM [Suspect]
  14. ULTIVA [Suspect]
     Route: 042
     Dates: start: 20070718, end: 20070718
  15. PROPOFOL FRESENIUS [Suspect]
     Route: 042
     Dates: start: 20070718, end: 20070718
  16. ATROPINE [Suspect]
     Route: 042
     Dates: start: 20070718, end: 20070718
  17. KETOPROFEN [Suspect]
     Route: 042
     Dates: start: 20070718, end: 20070718
  18. MORPHINE [Suspect]
     Route: 042
     Dates: start: 20070718, end: 20070718
  19. NICARDIPINE HCL [Suspect]
     Dates: start: 20070718, end: 20070718
  20. OXACILLIN SODIUM [Suspect]
     Route: 042
     Dates: start: 20070718, end: 20070718
  21. PLAVIX [Concomitant]
     Dates: start: 20070718, end: 20070718

REACTIONS (1)
  - CEREBRAL HAEMATOMA [None]
